FAERS Safety Report 7738052-3 (Version None)
Quarter: 2011Q3

REPORT INFORMATION
  Report Type: 
  Country: None (occurrence: None)
  Receive Date: 20110908
  Receipt Date: 20110831
  Transmission Date: 20111222
  Serious: Yes (Death)
  Sender: FDA-Public Use
  Company Number: JP-GENENTECH-323880

PATIENT
  Age: 84 Year
  Sex: Male

DRUGS (5)
  1. GLYCEOL [Concomitant]
     Indication: PRODUCT USED FOR UNKNOWN INDICATION
     Dosage: UNK
     Dates: start: 20101122, end: 20101126
  2. ACTIVASE [Suspect]
     Indication: EMBOLIC STROKE
     Dosage: 29 ML, QD
     Route: 042
     Dates: start: 20101121, end: 20101121
  3. ASPIRIN [Concomitant]
     Indication: PRODUCT USED FOR UNKNOWN INDICATION
  4. RADICUT [Concomitant]
     Indication: PRODUCT USED FOR UNKNOWN INDICATION
     Dosage: 30 MG, BID
     Dates: start: 20101121, end: 20101126
  5. WARFARIN SODIUM [Concomitant]
     Indication: PRODUCT USED FOR UNKNOWN INDICATION
     Dosage: UNK
     Route: 048
     Dates: start: 20101125

REACTIONS (2)
  - CEREBRAL HAEMORRHAGE [None]
  - CARDIAC FAILURE [None]
